FAERS Safety Report 6030546-4 (Version None)
Quarter: 2009Q1

REPORT INFORMATION
  Report Type: 
  Country: None (occurrence: None)
  Receive Date: 20090105
  Receipt Date: 20090105
  Transmission Date: 20090719
  Serious: Yes (Other)
  Sender: FDA-Public Use
  Company Number: None

PATIENT
  Age: 67 Year
  Sex: Male
  Weight: 72.5755 kg

DRUGS (1)
  1. ORENCIA [Suspect]
     Indication: RHEUMATOID ARTHRITIS
     Dosage: INFUSION BY BODY WEIGHT -160- MONTHLY IV
     Route: 042
     Dates: start: 20071001, end: 20080901

REACTIONS (4)
  - APHTHOUS STOMATITIS [None]
  - DYSPHASIA [None]
  - HYPOPHAGIA [None]
  - WEIGHT DECREASED [None]
